FAERS Safety Report 8781647 (Version 2)
Quarter: 2012Q4

REPORT INFORMATION
  Report Type: 
  Country: US (occurrence: US)
  Receive Date: 20120913
  Receipt Date: 20121004
  Transmission Date: 20130627
  Serious: Yes (Hospitalization)
  Sender: FDA-Public Use
  Company Number: US-ASTELLAS-2012US005404

PATIENT
  Sex: Male
  Weight: 125 kg

DRUGS (11)
  1. PROGRAF [Suspect]
     Indication: RENAL TRANSPLANT
     Dosage: 5 mg, bid
     Route: 048
     Dates: start: 20070425
  2. PROGRAF [Suspect]
     Dosage: 6 mg, bid
     Route: 048
  3. PROGRAF [Suspect]
     Dosage: 4 mg, bid
     Route: 048
  4. CELLCEPT                           /01275102/ [Concomitant]
     Indication: PROPHYLAXIS AGAINST TRANSPLANT REJECTION
     Dosage: 1000 mg, bid
     Route: 048
     Dates: start: 20070425
  5. METOPROLOL [Concomitant]
     Indication: HYPERTENSION
     Dosage: 12.5 mg, bid
     Route: 048
     Dates: start: 2009
  6. ASPIRIN [Concomitant]
     Indication: THROMBOSIS PROPHYLAXIS
     Dosage: 81 mg, UID/QD
     Route: 048
     Dates: start: 2000
  7. HYDROCODONE [Concomitant]
     Indication: HYPERTENSION
     Dosage: 50 mg, bid
     Route: 048
     Dates: start: 2009
  8. THIAZIDE [Concomitant]
     Indication: DIURETIC THERAPY
     Dosage: 40 mg, bid
     Route: 048
     Dates: start: 2009
  9. IRON [Concomitant]
     Indication: BLOOD IRON
     Dosage: 325 mg, UID/QD
     Route: 048
     Dates: start: 20120606
  10. CALCIUM [Concomitant]
     Indication: SUPPLEMENTATION THERAPY
     Dosage: 600 mg, tid
     Route: 048
  11. PREDNISONE [Suspect]
     Indication: PROPHYLAXIS AGAINST TRANSPLANT REJECTION
     Dosage: 5 mg, UID/QD
     Route: 048
     Dates: start: 20070425

REACTIONS (6)
  - Hyperglycaemia [Unknown]
  - Immunosuppressant drug level decreased [Unknown]
  - Renal failure acute [Recovering/Resolving]
  - Foot fracture [Unknown]
  - Gangrene [Recovering/Resolving]
  - Sepsis [Recovered/Resolved]
